FAERS Safety Report 8477133-6 (Version None)
Quarter: 2012Q2

REPORT INFORMATION
  Report Type: 
  Country: None (occurrence: None)
  Receive Date: 20120629
  Receipt Date: 20120626
  Transmission Date: 20120825
  Serious: Yes (Other)
  Sender: FDA-Public Use
  Company Number: IT-AMGEN-ITASP2012012757

PATIENT
  Age: 58 Year
  Sex: Male

DRUGS (1)
  1. VECTIBIX [Suspect]
     Indication: COLON CANCER
     Dosage: 400 MG, QCYCLE
     Route: 042
     Dates: start: 20110926, end: 20111221

REACTIONS (1)
  - SKIN REACTION [None]
